FAERS Safety Report 6981179-4 (Version None)
Quarter: 2010Q3

REPORT INFORMATION
  Report Type: 
  Country: None (occurrence: None)
  Receive Date: 20100914
  Receipt Date: 20100913
  Transmission Date: 20110219
  Serious: No
  Sender: FDA-Public Use
  Company Number: US-PFIZER INC-2009162486

PATIENT
  Sex: Female
  Weight: 61.234 kg

DRUGS (6)
  1. CORVERT [Suspect]
     Indication: ATRIAL FIBRILLATION
     Route: 042
     Dates: start: 20060801
  2. CORVERT [Suspect]
     Dosage: UNK
  3. NAPROXEN [Concomitant]
     Dosage: UNK
  4. ATENOLOL [Concomitant]
     Dosage: UNK
  5. WARFARIN SODIUM [Concomitant]
     Dosage: UNK
  6. PRAVACHOL [Concomitant]
     Dosage: UNK

REACTIONS (1)
  - ATRIAL FIBRILLATION [None]
